FAERS Safety Report 24357670 (Version 1)
Quarter: 2024Q3

REPORT INFORMATION
  Report Type: Spontaneous
  Country: US (occurrence: None)
  Receive Date: 20240923
  Receipt Date: 20240923
  Transmission Date: 20241016
  Serious: No
  Sender: Public
  Company Number: None

PATIENT
  Age: 46 Year
  Sex: Female
  Weight: 89.55 kg

DRUGS (10)
  1. ZYPREXA [Suspect]
     Active Substance: OLANZAPINE
     Indication: Depression
     Dosage: 1 TABLET 3 TIMES A DAY ORAL
     Route: 048
  2. LEVOTHYROXINE [Concomitant]
     Active Substance: LEVOTHYROXINE\LEVOTHYROXINE SODIUM
  3. PROTONIX [Concomitant]
     Active Substance: PANTOPRAZOLE SODIUM
  4. CLARITIN [Concomitant]
     Active Substance: LORATADINE
  5. carry an epipen [Concomitant]
  6. ALBUTEROL [Concomitant]
     Active Substance: ALBUTEROL
  7. ADVAIR HFA [Concomitant]
     Active Substance: FLUTICASONE PROPIONATE\SALMETEROL XINAFOATE
  8. EFFEXOR [Concomitant]
     Active Substance: VENLAFAXINE HYDROCHLORIDE
  9. TYLENOL [Concomitant]
     Active Substance: ACETAMINOPHEN
  10. MAGNESIUM [Concomitant]
     Active Substance: MAGNESIUM

REACTIONS (22)
  - Hyperglycaemia [None]
  - Confusional state [None]
  - Somnolence [None]
  - Oedema peripheral [None]
  - Dyspnoea [None]
  - Dizziness [None]
  - Gait disturbance [None]
  - Fall [None]
  - Lymphadenopathy [None]
  - Ocular icterus [None]
  - Tongue movement disturbance [None]
  - Trismus [None]
  - Swelling face [None]
  - Muscle twitching [None]
  - Dysphagia [None]
  - Speech disorder [None]
  - Palpitations [None]
  - Drooling [None]
  - Chest pain [None]
  - Paraesthesia [None]
  - Breast discharge [None]
  - Cranial nerve disorder [None]

NARRATIVE: CASE EVENT DATE: 20240916
